FAERS Safety Report 6242649-X (Version None)
Quarter: 2009Q2

REPORT INFORMATION
  Report Type: 
  Country: None (occurrence: None)
  Receive Date: 20090622
  Receipt Date: 20090622
  Transmission Date: 20091009
  Serious: No
  Sender: FDA-Public Use
  Company Number: None

PATIENT
  Sex: Male
  Weight: 81.6475 kg

DRUGS (1)
  1. ZICAM NASEL GEL COLD REMEDY ZICAM LLC SCOTTSDALE, AZ. [Suspect]
     Indication: NASOPHARYNGITIS
     Dosage: ONE PUMP SPRAY IN EACH NOSTRIL EVERY 4-6 HOURS NASAL
     Route: 045
     Dates: start: 20060101, end: 20090315

REACTIONS (2)
  - AGEUSIA [None]
  - ANOSMIA [None]
